FAERS Safety Report 13132232 (Version 1)
Quarter: 2017Q1

REPORT INFORMATION
  Report Type: Report from Study
  Country: US (occurrence: US)
  Receive Date: 20170119
  Receipt Date: 20170119
  Transmission Date: 20170428
  Serious: Yes (Death, Other)
  Sender: FDA-Public Use
  Company Number: US-MYLANLABS-2017M1002558

PATIENT

DRUGS (2)
  1. TEMAZEPAM. [Suspect]
     Active Substance: TEMAZEPAM
     Indication: INSOMNIA
     Route: 065
  2. SIMVASTATIN. [Suspect]
     Active Substance: SIMVASTATIN
     Indication: HYPERLIPIDAEMIA
     Dosage: 80MG
     Route: 065

REACTIONS (8)
  - Personality change [Fatal]
  - Mood altered [Fatal]
  - Non-alcoholic fatty liver [Unknown]
  - Completed suicide [Fatal]
  - Insomnia [Unknown]
  - Rash [Unknown]
  - Abnormal behaviour [Fatal]
  - Body temperature fluctuation [Unknown]
